FAERS Safety Report 22000685 (Version 1)
Quarter: 2023Q1

REPORT INFORMATION
  Report Type: Spontaneous
  Country: US (occurrence: US)
  Receive Date: 20230216
  Receipt Date: 20230216
  Transmission Date: 20230418
  Serious: Yes (Death, Life-Threatening, Hospitalization, Other)
  Sender: FDA-Public Use
  Company Number: US-SUN PHARMACEUTICAL INDUSTRIES LTD-2023R1-378551

PATIENT
  Age: 74 Year
  Sex: Female

DRUGS (1)
  1. DEXAMETHASONE [Suspect]
     Active Substance: DEXAMETHASONE
     Indication: COVID-19 pneumonia
     Dosage: UNK
     Route: 048

REACTIONS (10)
  - Pneumonia bacterial [Fatal]
  - Sepsis [Fatal]
  - Multisystem inflammatory syndrome [Fatal]
  - Hypotension [Unknown]
  - Tachycardia [Unknown]
  - Tachypnoea [Unknown]
  - Hypoxia [Unknown]
  - Pyrexia [Unknown]
  - Pneumonitis [Unknown]
  - Pulmonary embolism [Unknown]
